FAERS Safety Report 24610237 (Version 1)
Quarter: 2024Q4

REPORT INFORMATION
  Report Type: Spontaneous
  Country: US (occurrence: US)
  Receive Date: 20241112
  Receipt Date: 20241112
  Transmission Date: 20250114
  Serious: No
  Sender: MERCK
  Company Number: US-009507513-2410USA005934

PATIENT
  Sex: Female
  Weight: 57.143 kg

DRUGS (3)
  1. KEYTRUDA [Suspect]
     Active Substance: PEMBROLIZUMAB
     Indication: Endometrial cancer
     Dosage: STRENGTH: 100MG/4ML VIAL
  2. LENVATINIB MESYLATE [Suspect]
     Active Substance: LENVATINIB MESYLATE
     Indication: Endometrial cancer
     Dosage: 14 MILLIGRAM, QD, STRENGTH: 10MG/4MG
     Route: 048
     Dates: start: 20240828
  3. DIETARY SUPPLEMENT\VITAMINS [Suspect]
     Active Substance: DIETARY SUPPLEMENT\VITAMINS
     Indication: Endometrial cancer
     Dosage: UNK

REACTIONS (2)
  - Liver function test abnormal [Not Recovered/Not Resolved]
  - Product use issue [Unknown]

NARRATIVE: CASE EVENT DATE: 20240828
